FAERS Safety Report 8512624 (Version 4)
Quarter: 2016Q3

REPORT INFORMATION
  Report Type: Spontaneous
  Country: US (occurrence: US)
  Receive Date: 20120413
  Receipt Date: 20160802
  Transmission Date: 20161109
  Serious: Yes (Other)
  Sender: FDA-Public Use
  Company Number: US-ASTRAZENECA-2011SE77190

PATIENT
  Age: 62 Year
  Sex: Female

DRUGS (15)
  1. WELLBUTRIN [Concomitant]
     Active Substance: BUPROPION HYDROCHLORIDE
  2. TOPROL XL [Suspect]
     Active Substance: METOPROLOL SUCCINATE
     Indication: HEART RATE DECREASED
     Route: 048
  3. NEURONTIN [Concomitant]
     Active Substance: GABAPENTIN
  4. METFORMIN [Concomitant]
     Active Substance: METFORMIN HYDROCHLORIDE
     Route: 048
  5. VITAMIN D2 [Concomitant]
     Active Substance: ERGOCALCIFEROL
  6. VICTOZA [Concomitant]
     Active Substance: LIRAGLUTIDE
     Dosage: 12 UNITS ,DAILY.
     Route: 058
  7. VICTOZA [Concomitant]
     Active Substance: LIRAGLUTIDE
     Dosage: 18 UNITS ,DAILY.
     Route: 058
  8. LEXAPRO [Concomitant]
     Active Substance: ESCITALOPRAM OXALATE
  9. LEVEMIR [Concomitant]
     Active Substance: INSULIN DETEMIR
     Dosage: 20 U,EVENING
     Route: 058
  10. NIASPAN [Suspect]
     Active Substance: NIACIN
     Route: 065
  11. LEVOTHYROXINE. [Concomitant]
     Active Substance: LEVOTHYROXINE
     Route: 048
  12. VICTOZA [Concomitant]
     Active Substance: LIRAGLUTIDE
     Dosage: 6 UNITS ,DAILY.
     Route: 058
  13. NEXIUM [Suspect]
     Active Substance: ESOMEPRAZOLE MAGNESIUM
     Indication: GASTROOESOPHAGEAL REFLUX DISEASE
     Route: 048
     Dates: start: 2000
  14. CRESTOR [Suspect]
     Active Substance: ROSUVASTATIN CALCIUM
     Indication: BLOOD CHOLESTEROL ABNORMAL
     Route: 048
  15. NOVOLOG [Concomitant]
     Active Substance: INSULIN ASPART
     Dosage: 10 U AT LUNCH AND 10 U AT BEDTIME.

REACTIONS (11)
  - Hypothyroidism [Not Recovered/Not Resolved]
  - Osteoporosis [Unknown]
  - Blood cholesterol increased [Unknown]
  - Blood glucose increased [Unknown]
  - Endocrine disorder [Unknown]
  - Intraductal proliferative breast lesion [Unknown]
  - Weight increased [Unknown]
  - Tachycardia [Unknown]
  - Diabetes mellitus [Unknown]
  - Drug dose omission [Unknown]
  - Depression [Unknown]

NARRATIVE: CASE EVENT DATE: 2008
